FAERS Safety Report 8249672-4 (Version None)
Quarter: 2012Q2

REPORT INFORMATION
  Report Type: 
  Country: None (occurrence: None)
  Receive Date: 20120402
  Receipt Date: 20120328
  Transmission Date: 20120825
  Serious: Yes (Other)
  Sender: FDA-Public Use
  Company Number: US-PFIZER INC-2012079976

PATIENT
  Sex: Female
  Weight: 99.773 kg

DRUGS (1)
  1. EFFEXOR [Suspect]
     Indication: ANXIETY
     Dosage: 225 MG, DAILY
     Dates: start: 20040101

REACTIONS (1)
  - SLEEP APNOEA SYNDROME [None]
